FAERS Safety Report 7103109-7 (Version None)
Quarter: 2010Q4

REPORT INFORMATION
  Report Type: 
  Country: None (occurrence: None)
  Receive Date: 20101108
  Receipt Date: 20101101
  Transmission Date: 20110411
  Serious: Yes (Hospitalization)
  Sender: FDA-Public Use
  Company Number: TPA2010A05642

PATIENT
  Sex: Female

DRUGS (1)
  1. PREVACID [Suspect]
     Indication: GASTRIC ULCER
     Dosage: 30 MG, 1 IN 1 D, PER ORAL
     Route: 048
     Dates: start: 20040101, end: 20090101

REACTIONS (2)
  - ATRIAL FIBRILLATION [None]
  - CHOLECYSTECTOMY [None]
